FAERS Safety Report 9878630 (Version 2)
Quarter: 2014Q1

REPORT INFORMATION
  Report Type: Spontaneous
  Country: GB (occurrence: GB)
  Receive Date: 20140206
  Receipt Date: 20140218
  Transmission Date: 20141002
  Serious: Yes (Death)
  Sender: FDA-Public Use
  Company Number: GB-B.I. PHARMACEUTICALS,INC./RIDGEFIELD-2014-BI-05292UK

PATIENT
  Age: 78 Year
  Sex: Male

DRUGS (10)
  1. PRADAXA [Suspect]
     Indication: ATRIAL FIBRILLATION
  2. ALLOPURINOL [Concomitant]
  3. ASPIRIN [Concomitant]
  4. BISOPROLOL [Concomitant]
  5. OMEPRAZOLE [Concomitant]
  6. RAMIPRIL [Concomitant]
  7. SPIRONOLACTONE [Concomitant]
  8. TAMSULOSIN [Concomitant]
  9. VITAMIN B [Concomitant]
  10. BUMETAMIDE [Concomitant]

REACTIONS (2)
  - Traumatic intracranial haemorrhage [Fatal]
  - Fall [Unknown]
